FAERS Safety Report 13961485 (Version 1)
Quarter: 2017Q3

REPORT INFORMATION
  Report Type: Report from Study
  Country: US (occurrence: US)
  Receive Date: 20170912
  Receipt Date: 20170912
  Transmission Date: 20171128
  Serious: Yes (Hospitalization, Other)
  Sender: FDA-Public Use
  Company Number: US-BAYER-2017-169389

PATIENT
  Sex: Female

DRUGS (1)
  1. GADOLINIUM [Suspect]
     Active Substance: GADOLINIUM
     Dosage: UNK UNK, ONCE

REACTIONS (18)
  - Essential tremor [None]
  - Alopecia [None]
  - Sensory disturbance [None]
  - Auditory disorder [None]
  - Fibroma [None]
  - Mood altered [None]
  - Phantom pain [None]
  - Joint stiffness [None]
  - Peripheral sensory neuropathy [None]
  - Fatigue [None]
  - Formication [None]
  - Gadolinium deposition disease [None]
  - Chemical burn of skin [None]
  - Headache [None]
  - Pruritus [None]
  - Visual impairment [None]
  - Pain [None]
  - Neurotoxicity [None]
